FAERS Safety Report 9781681 (Version 1)
Quarter: 2013Q4

REPORT INFORMATION
  Report Type: Spontaneous
  Country: FR (occurrence: FR)
  Receive Date: 20131224
  Receipt Date: 20131224
  Transmission Date: 20140711
  Serious: Yes (Other)
  Sender: FDA-Public Use
  Company Number: PHHY2013FR148715

PATIENT
  Age: 31 Year
  Sex: Male

DRUGS (1)
  1. MINOCYCLINE [Suspect]

REACTIONS (10)
  - Human herpesvirus 6 infection [Unknown]
  - Basedow^s disease [Unknown]
  - Drug reaction with eosinophilia and systemic symptoms [Unknown]
  - Dermatitis exfoliative [Unknown]
  - Pyrexia [Unknown]
  - Lymphadenopathy [Unknown]
  - Eosinophilia [Unknown]
  - Hepatitis [Unknown]
  - Renal failure [Unknown]
  - Hyperthyroidism [Unknown]
